FAERS Safety Report 18739257 (Version 1)
Quarter: 2021Q1

REPORT INFORMATION
  Report Type: Spontaneous
  Country: US (occurrence: US)
  Receive Date: 20210114
  Receipt Date: 20210114
  Transmission Date: 20210419
  Serious: No
  Sender: FDA-Public Use
  Company Number: US-AJANTA PHARMA USA INC.-2105329

PATIENT
  Sex: Female

DRUGS (1)
  1. RANITIDINE (ANDA 209859) [Suspect]
     Active Substance: RANITIDINE
     Dates: start: 202002

REACTIONS (2)
  - Product substitution issue [Unknown]
  - Drug ineffective [Unknown]

NARRATIVE: CASE EVENT DATE: 202002
